FAERS Safety Report 7918764-9 (Version None)
Quarter: 2011Q4

REPORT INFORMATION
  Report Type: 
  Country: None (occurrence: None)
  Receive Date: 20111116
  Receipt Date: 20111114
  Transmission Date: 20120403
  Serious: Yes (Other)
  Sender: FDA-Public Use
  Company Number: US-AMGEN-USASP2011003098

PATIENT
  Age: 72 Year
  Sex: Female

DRUGS (3)
  1. NPLATE [Suspect]
     Indication: THROMBOCYTOSIS
  2. NPLATE [Suspect]
     Indication: EOSINOPHILIA
     Dates: start: 20090601
  3. NPLATE [Suspect]
     Indication: MEGAKARYOCYTES

REACTIONS (6)
  - INJECTION SITE PAIN [None]
  - MENTAL IMPAIRMENT [None]
  - HAEMATOMA [None]
  - PLATELET COUNT ABNORMAL [None]
  - FEELING COLD [None]
  - CHEST PAIN [None]
